FAERS Safety Report 7347331-3 (Version None)
Quarter: 2011Q1

REPORT INFORMATION
  Report Type: 
  Country: None (occurrence: None)
  Receive Date: 20110311
  Receipt Date: 20110302
  Transmission Date: 20110831
  Serious: Yes (Hospitalization)
  Sender: FDA-Public Use
  Company Number: JP-ROCHE-758085

PATIENT
  Sex: Female

DRUGS (7)
  1. ELPLAT [Concomitant]
     Route: 041
     Dates: start: 20100222
  2. PREDONINE [Concomitant]
     Route: 048
     Dates: start: 20100520
  3. AVASTIN [Suspect]
     Indication: RECTAL CANCER METASTATIC
     Route: 041
     Dates: start: 20100222, end: 20110212
  4. MUCOSTA [Concomitant]
     Route: 048
     Dates: start: 20100520
  5. PARIET [Concomitant]
     Route: 048
     Dates: start: 20100520
  6. LOXONIN [Concomitant]
     Route: 048
     Dates: start: 20100520
  7. XELODA [Suspect]
     Indication: RECTAL CANCER METASTATIC
     Route: 048
     Dates: start: 20100222

REACTIONS (1)
  - CEREBRAL HAEMORRHAGE [None]
